FAERS Safety Report 7515559-5 (Version None)
Quarter: 2011Q2

REPORT INFORMATION
  Report Type: 
  Country: None (occurrence: None)
  Receive Date: 20110601
  Receipt Date: 20100629
  Transmission Date: 20111010
  Serious: Yes (Other)
  Sender: FDA-Public Use
  Company Number: US-PFIZER INC-2010081272

PATIENT
  Sex: Female

DRUGS (4)
  1. ACETAMINOPHEN AND HYDROCODONE BITARTRATE [Concomitant]
     Indication: NECK PAIN
     Dosage: 10/325 MG
     Route: 048
     Dates: start: 20030101
  2. CHANTIX [Suspect]
     Indication: SMOKING CESSATION THERAPY
     Dosage: 0.5 MG, 1X/DAY
     Route: 048
     Dates: start: 20100603, end: 20100601
  3. ACETAMINOPHEN AND HYDROCODONE BITARTRATE [Concomitant]
     Indication: BACK PAIN
  4. CHANTIX [Suspect]
     Dosage: 1 MG, 2X/DAY
     Route: 048
     Dates: start: 20100601

REACTIONS (4)
  - DEPRESSED MOOD [None]
  - THINKING ABNORMAL [None]
  - ANXIETY [None]
  - TINNITUS [None]
